FAERS Safety Report 4870905-6 (Version None)
Quarter: 2005Q4

REPORT INFORMATION
  Report Type: 
  Country: None (occurrence: None)
  Receive Date: 20051229
  Receipt Date: 20051222
  Transmission Date: 20060501
  Serious: Yes (Hospitalization)
  Sender: FDA-Public Use
  Company Number: S05-FRA-05683-01

PATIENT
  Age: 68 Year
  Sex: Female

DRUGS (5)
  1. CITALOPRAM HYDROBROMIDE [Suspect]
     Dosage: 20 MG QD PO
     Route: 048
  2. TEGRETOL [Suspect]
     Dosage: UNK
     Route: 065
  3. BROMAZEPAM [Suspect]
     Dosage: UNK
     Route: 065
  4. VALPROATE SODIUM [Suspect]
     Dosage: 300 MG QD PO
     Route: 048
  5. ZOLPIDEM TARTRATE [Suspect]
     Dosage: UNK
     Route: 065

REACTIONS (6)
  - CONSTIPATION [None]
  - DEHYDRATION [None]
  - HYPOTENSION [None]
  - MALAISE [None]
  - MYOCLONUS [None]
  - VOMITING [None]
